FAERS Safety Report 4277775-8 (Version None)
Quarter: 2004Q1

REPORT INFORMATION
  Report Type: 
  Country: None (occurrence: None)
  Receive Date: 20040121
  Receipt Date: 20040109
  Transmission Date: 20041129
  Serious: Yes (Hospitalization)
  Sender: FDA-Public Use
  Company Number: 2004002060

PATIENT
  Sex: Male

DRUGS (1)
  1. PIROXICAM [Suspect]
     Indication: OSTEOARTHRITIS
     Dosage: 2 ML (DAILY) , INTRAMUSCULAR
     Route: 030

REACTIONS (1)
  - HAEMORRHAGE [None]
